FAERS Safety Report 25103468 (Version 3)
Quarter: 2025Q1

REPORT INFORMATION
  Report Type: Spontaneous
  Country: US (occurrence: US)
  Receive Date: 20250321
  Receipt Date: 20250326
  Transmission Date: 20250409
  Serious: Yes (Other)
  Sender: GILEAD
  Company Number: US-GILEAD-2025-0708021

PATIENT
  Age: 65 Year
  Sex: Male

DRUGS (3)
  1. DESCOVY [Suspect]
     Active Substance: EMTRICITABINE\TENOFOVIR ALAFENAMIDE FUMARATE
     Indication: HIV infection
     Route: 065
  2. TRUVADA [Suspect]
     Active Substance: EMTRICITABINE\TENOFOVIR DISOPROXIL FUMARATE
     Indication: HIV infection
     Route: 065
  3. ISENTRESS [Concomitant]
     Active Substance: RALTEGRAVIR POTASSIUM

REACTIONS (10)
  - Cognitive disorder [Unknown]
  - Sitting disability [Unknown]
  - Toxicity to various agents [Unknown]
  - Joint range of motion decreased [Unknown]
  - Muscle disorder [Unknown]
  - Ligament disorder [Unknown]
  - Bone disorder [Unknown]
  - Muscle atrophy [Unknown]
  - Tissue injury [Unknown]
  - Gait disturbance [Unknown]
